FAERS Safety Report 7272045-8 (Version None)
Quarter: 2011Q1

REPORT INFORMATION
  Report Type: 
  Country: None (occurrence: None)
  Receive Date: 20110203
  Receipt Date: 20110125
  Transmission Date: 20110831
  Serious: Yes (Other)
  Sender: FDA-Public Use
  Company Number: ES-ASTRAZENECA-2011SE04669

PATIENT
  Age: 34 Year
  Sex: Female

DRUGS (3)
  1. MERONEM [Suspect]
     Indication: PYREXIA
     Route: 042
     Dates: start: 20100916, end: 20100920
  2. AMIKACINA [Suspect]
     Indication: PYREXIA
     Route: 042
     Dates: start: 20100917, end: 20100920
  3. VANCOMICINA [Suspect]
     Indication: PYREXIA
     Route: 042
     Dates: start: 20100916, end: 20100919

REACTIONS (1)
  - RENAL FAILURE ACUTE [None]
